FAERS Safety Report 23535264 (Version 1)
Quarter: 2024Q1

REPORT INFORMATION
  Report Type: Spontaneous
  Country: CA (occurrence: CA)
  Receive Date: 20240218
  Receipt Date: 20240218
  Transmission Date: 20240410
  Serious: Yes (Other)
  Sender: FDA-Public Use
  Company Number: CA-AUROBINDO-AUR-APL-2024-006259

PATIENT
  Age: 21 Year
  Sex: Female

DRUGS (4)
  1. TOPIRAMATE [Suspect]
     Active Substance: TOPIRAMATE
     Indication: Idiopathic intracranial hypertension
     Dosage: 50 MILLIGRAM (DIE)
     Route: 048
  2. FUROSEMIDE [Suspect]
     Active Substance: FUROSEMIDE
     Indication: Idiopathic intracranial hypertension
     Dosage: 20 MILLIGRAM, TWO TIMES A DAY
     Route: 048
  3. ACETAZOLAMIDE [Suspect]
     Active Substance: ACETAZOLAMIDE
     Dosage: 1 GRAM, FOUR TIMES/DAY
     Route: 048
  4. ACETAZOLAMIDE [Suspect]
     Active Substance: ACETAZOLAMIDE
     Dosage: 250 MILLIGRAM, FOUR TIMES/DAY
     Route: 048

REACTIONS (1)
  - Drug ineffective [Unknown]
